FAERS Safety Report 7425143-X (Version None)
Quarter: 2011Q2

REPORT INFORMATION
  Report Type: 
  Country: None (occurrence: None)
  Receive Date: 20110412
  Receipt Date: 20110328
  Transmission Date: 20111010
  Serious: Yes (Other)
  Sender: FDA-Public Use
  Company Number: CRC-11-021

PATIENT
  Age: 46 Year
  Sex: Female

DRUGS (1)
  1. METFORMIN HCL [Suspect]
     Indication: DIABETES MELLITUS
     Dosage: 3 TABLETS DAILY; ORALLY
     Route: 048
     Dates: start: 20101207

REACTIONS (2)
  - PRODUCT SUBSTITUTION ISSUE [None]
  - BLOOD GLUCOSE INCREASED [None]
